FAERS Safety Report 4892270-0 (Version None)
Quarter: 2006Q1

REPORT INFORMATION
  Report Type: 
  Country: None (occurrence: None)
  Receive Date: 20060125
  Receipt Date: 20060125
  Transmission Date: 20060701
  Serious: Yes (Life-Threatening)
  Sender: FDA-Public Use
  Company Number: None

PATIENT
  Sex: Female
  Weight: 85 kg

DRUGS (16)
  1. KEPIVANCE [Suspect]
     Indication: MUCOSAL INFLAMMATION
     Dosage: 5070 MICROGRAMS QD X 6 DAYS IV
     Route: 042
     Dates: start: 20051226, end: 20051228
  2. KEPIVANCE [Suspect]
     Indication: PROPHYLAXIS
     Dosage: 5070 MICROGRAMS QD X 6 DAYS IV
     Route: 042
     Dates: start: 20051226, end: 20051228
  3. KEPIVANCE [Suspect]
     Indication: STEM CELL TRANSPLANT
     Dosage: 5070 MICROGRAMS QD X 6 DAYS IV
     Route: 042
     Dates: start: 20051226, end: 20051228
  4. KEPIVANCE [Suspect]
     Indication: MUCOSAL INFLAMMATION
     Dosage: 5070 MICROGRAMS QD X 6 DAYS IV
     Route: 042
     Dates: start: 20060105, end: 20060107
  5. KEPIVANCE [Suspect]
     Indication: PROPHYLAXIS
     Dosage: 5070 MICROGRAMS QD X 6 DAYS IV
     Route: 042
     Dates: start: 20060105, end: 20060107
  6. KEPIVANCE [Suspect]
     Indication: STEM CELL TRANSPLANT
     Dosage: 5070 MICROGRAMS QD X 6 DAYS IV
     Route: 042
     Dates: start: 20060105, end: 20060107
  7. FLAGYL [Concomitant]
  8. LEVAQUIN [Concomitant]
  9. ACYCLOVIR [Concomitant]
  10. MYCELEX [Concomitant]
  11. FILGRASTIM [Concomitant]
  12. FOLIC ACID [Concomitant]
  13. NYSTATIN [Concomitant]
  14. CASPOFUNGIN [Concomitant]
  15. VANCOMYCIN [Concomitant]
  16. AZTREONAM [Concomitant]

REACTIONS (3)
  - NEUTROPENIC COLITIS [None]
  - RASH [None]
  - SKIN HYPERPIGMENTATION [None]
